FAERS Safety Report 6728642-9 (Version None)
Quarter: 2010Q2

REPORT INFORMATION
  Report Type: 
  Country: None (occurrence: None)
  Receive Date: 20100517
  Receipt Date: 20100506
  Transmission Date: 20101027
  Serious: Yes (Death, Other)
  Sender: FDA-Public Use
  Company Number: GR-PFIZER INC-2010057466

PATIENT
  Age: 50 Year
  Sex: Female

DRUGS (3)
  1. LINEZOLID [Suspect]
     Indication: PNEUMONIA NECROTISING
  2. MEROPENEM [Suspect]
     Indication: PNEUMONIA NECROTISING
  3. MOXIFLOXACIN [Suspect]
     Indication: PNEUMONIA NECROTISING

REACTIONS (1)
  - DRUG INEFFECTIVE [None]
